FAERS Safety Report 12979311 (Version 1)
Quarter: 2016Q4

REPORT INFORMATION
  Report Type: Spontaneous
  Country: FR (occurrence: FR)
  Receive Date: 20161128
  Receipt Date: 20161128
  Transmission Date: 20170207
  Serious: Yes (Hospitalization)
  Sender: FDA-Public Use
  Company Number: FR-PFIZER INC-2016541827

PATIENT
  Age: 68 Year
  Sex: Male

DRUGS (8)
  1. KARDEGIC [Concomitant]
     Active Substance: ASPIRIN LYSINE
  2. STRESAM [Concomitant]
     Active Substance: ETIFOXINE
  3. TAHOR [Suspect]
     Active Substance: ATORVASTATIN CALCIUM
     Indication: CAROTID ARTERIOSCLEROSIS
     Dosage: 10 MG, 1X/DAY
     Route: 048
     Dates: start: 201505, end: 20160804
  4. RAMIPRIL. [Concomitant]
     Active Substance: RAMIPRIL
  5. ZOPICLONE [Concomitant]
     Active Substance: ZOPICLONE
  6. MOPRAL /00661201/ [Concomitant]
     Active Substance: OMEPRAZOLE SODIUM
  7. DUPHALAC [Concomitant]
     Active Substance: LACTULOSE
  8. AMLOR [Concomitant]
     Active Substance: AMLODIPINE BESYLATE

REACTIONS (2)
  - Tendon rupture [Not Recovered/Not Resolved]
  - Muscle injury [Not Recovered/Not Resolved]

NARRATIVE: CASE EVENT DATE: 201608
